FAERS Safety Report 6269960-0 (Version None)
Quarter: 2009Q3

REPORT INFORMATION
  Report Type: 
  Country: None (occurrence: None)
  Receive Date: 20090716
  Receipt Date: 20090702
  Transmission Date: 20100115
  Serious: Yes (Other)
  Sender: FDA-Public Use
  Company Number: PHHY2009ZA24870

PATIENT
  Sex: Male
  Weight: 21.3 kg

DRUGS (3)
  1. DESFERAL [Suspect]
     Indication: APLASTIC ANAEMIA
     Dosage: 1 GM/DAY FOR 2 CONSECUTIVE DAYS PER WEEK
     Route: 042
     Dates: start: 20090315, end: 20090626
  2. DESFERAL [Suspect]
     Indication: IRON OVERLOAD
  3. ASCORBIC ACID [Concomitant]
     Dosage: 50 MG/DAY
     Route: 048
     Dates: start: 20090315, end: 20090626

REACTIONS (2)
  - BLOOD IRON INCREASED [None]
  - EAR PAIN [None]
